FAERS Safety Report 18557969 (Version 2)
Quarter: 2020Q4

REPORT INFORMATION
  Report Type: Spontaneous
  Country: US (occurrence: US)
  Receive Date: 20201130
  Receipt Date: 20201217
  Transmission Date: 20210114
  Serious: Yes (Life-Threatening, Hospitalization, Other)
  Sender: FDA-Public Use
  Company Number: US-AUROBINDO-AUR-APL-2020-058091

PATIENT
  Age: 7 Year
  Sex: Male

DRUGS (4)
  1. ACETAMINOPHEN. [Suspect]
     Active Substance: ACETAMINOPHEN
     Dosage: 75 MILLIGRAM/KILOGRAM, ONCE A DAY (SCHEDULED EVERY 4 H)
     Route: 042
  2. ACETAMINOPHEN. [Suspect]
     Active Substance: ACETAMINOPHEN
     Indication: PYREXIA
     Dosage: UNK (AS NEEDED)
     Route: 048
  3. VORICONAZOLE. [Suspect]
     Active Substance: VORICONAZOLE
     Indication: CANDIDA INFECTION
     Dosage: UNK
     Route: 065
  4. AMPHOTERICIN B. [Concomitant]
     Active Substance: AMPHOTERICIN B
     Indication: CANDIDA INFECTION
     Dosage: UNK
     Route: 065

REACTIONS (9)
  - Electrocardiogram QT prolonged [Recovering/Resolving]
  - Cardiac failure acute [Recovering/Resolving]
  - Hepatic function abnormal [Recovered/Resolved]
  - Ventricular tachycardia [Recovering/Resolving]
  - Arrhythmia [Recovering/Resolving]
  - Coagulopathy [Recovering/Resolving]
  - Metabolic acidosis [Recovering/Resolving]
  - Glutathione synthetase deficiency [Recovering/Resolving]
  - Drug level increased [Unknown]
